FAERS Safety Report 9893383 (Version 3)
Quarter: 2014Q4

REPORT INFORMATION
  Report Type: Spontaneous
  Country: US (occurrence: US)
  Receive Date: 20140213
  Receipt Date: 20141001
  Transmission Date: 20150529
  Serious: Yes (Hospitalization, Other)
  Sender: FDA-Public Use
  Company Number: US-009507513-1402USA005076

PATIENT
  Sex: Female
  Weight: 61.68 kg

DRUGS (2)
  1. NUVARING [Suspect]
     Active Substance: ETHINYL ESTRADIOL\ETONOGESTREL
     Indication: PRODUCT USED FOR UNKNOWN INDICATION
     Dosage: 0.12 MG/0.015 MG/24 HR; LEAVE IN FOR 21 DAYS, REMOVE FOR 7 DAYS, THEN REPEAT CYCLE
     Route: 067
  2. VITAMINS (UNSPECIFIED) [Concomitant]
     Active Substance: VITAMINS
     Indication: PRODUCT USED FOR UNKNOWN INDICATION
     Route: 048

REACTIONS (6)
  - Nephrolithiasis [Unknown]
  - Breast prosthesis implantation [Unknown]
  - Menstruation delayed [Unknown]
  - Hyperpituitarism [Unknown]
  - Pituitary tumour [Unknown]
  - Pulmonary embolism [Unknown]

NARRATIVE: CASE EVENT DATE: 20120823
